FAERS Safety Report 6582461-5 (Version None)
Quarter: 2010Q1

REPORT INFORMATION
  Report Type: 
  Country: None (occurrence: None)
  Receive Date: 20100216
  Receipt Date: 20100205
  Transmission Date: 20100710
  Serious: Yes (Hospitalization)
  Sender: FDA-Public Use
  Company Number: PHEH2010US02178

PATIENT
  Sex: Female
  Weight: 87.982 kg

DRUGS (2)
  1. VALTURNA [Suspect]
     Indication: HYPERTENSION
     Dosage: 150/160 ONCE DAILY
     Route: 048
  2. SPIRONOLACTONE [Concomitant]

REACTIONS (4)
  - ASTHENIA [None]
  - DIZZINESS [None]
  - HYPOTENSION [None]
  - RENIN DECREASED [None]
